FAERS Safety Report 5490682-8 (Version None)
Quarter: 2007Q4

REPORT INFORMATION
  Report Type: 
  Country: None (occurrence: None)
  Receive Date: 20071019
  Receipt Date: 20071017
  Transmission Date: 20080405
  Serious: Yes (Life-Threatening, Hospitalization, Other)
  Sender: FDA-Public Use
  Company Number: DE-BAYER-200710899BVD

PATIENT
  Age: 68 Year
  Sex: Male
  Weight: 65 kg

DRUGS (16)
  1. SORAFENIB [Suspect]
     Indication: NON-SMALL CELL LUNG CANCER
     Dosage: UNIT DOSE: 400 MG
     Route: 048
     Dates: start: 20070722, end: 20070812
  2. SORAFENIB [Suspect]
     Dosage: TOTAL DAILY DOSE: 800 MG
     Route: 048
     Dates: start: 20070903, end: 20070101
  3. SORAFENIB [Suspect]
     Dosage: UNIT DOSE: 400 MG
     Route: 048
     Dates: start: 20070813, end: 20070902
  4. GEMCITABINE HCL [Suspect]
     Route: 042
     Dates: start: 20070717, end: 20070717
  5. GEMCITABINE HCL [Suspect]
     Route: 042
     Dates: start: 20070724, end: 20070724
  6. GEMCITABINE HCL [Suspect]
     Route: 042
     Dates: start: 20070809, end: 20070809
  7. GEMCITABINE HCL [Suspect]
     Route: 042
     Dates: start: 20070813, end: 20070813
  8. CISPLATIN [Suspect]
     Route: 042
     Dates: start: 20070813, end: 20070813
  9. CISPLATIN [Suspect]
     Route: 042
     Dates: start: 20070809, end: 20070809
  10. CISPLATIN [Suspect]
     Route: 042
     Dates: start: 20070717, end: 20070717
  11. RINGER [Concomitant]
     Route: 042
     Dates: start: 20070717, end: 20070717
  12. LASIX [Concomitant]
     Route: 042
     Dates: start: 20070717, end: 20070717
  13. ZOFRAN [Concomitant]
     Dates: start: 20070717, end: 20070717
  14. FORTECORTIN [Concomitant]
     Dates: start: 20070717, end: 20070717
  15. PANTOPRAZOLE SODIUM [Concomitant]
     Route: 048
     Dates: start: 20070701
  16. SYMBICORT [Concomitant]
     Route: 055
     Dates: start: 20070701

REACTIONS (4)
  - ANOREXIA [None]
  - PHARYNGITIS [None]
  - THROMBOCYTOPENIA [None]
  - WEIGHT DECREASED [None]
